FAERS Safety Report 12949846 (Version 2)
Quarter: 2017Q2

REPORT INFORMATION
  Report Type: Spontaneous
  Country: CN (occurrence: CN)
  Receive Date: 20161117
  Receipt Date: 20170418
  Transmission Date: 20170830
  Serious: Yes (Other)
  Sender: FDA-Public Use
  Company Number: CN-BAYER-2016-215297

PATIENT
  Weight: 32 kg

DRUGS (3)
  1. KOGENATE FS [Suspect]
     Active Substance: ANTIHEMOPHILIC FACTOR, HUMAN RECOMBINANT
     Indication: PROPHYLAXIS
     Dosage: INCREASED TO 750 IU, OR SHOULD BE USED AT LEAST 5 OR 6 TIMES
  2. KOGENATE FS [Suspect]
     Active Substance: ANTIHEMOPHILIC FACTOR, HUMAN RECOMBINANT
     Indication: PROPHYLAXIS
     Dosage: 500 IU, FOR THE FIRST TIME FOLLOWED BY THE SAME DOSE AFTER 8-10 HOURS
  3. KOGENATE FS [Suspect]
     Active Substance: ANTIHEMOPHILIC FACTOR, HUMAN RECOMBINANT
     Indication: PROPHYLAXIS
     Dosage: 500 IU, FOR 3 DAYS (10 TIMES FOR A MONTH)

REACTIONS (3)
  - Drug ineffective [None]
  - Product quality issue [None]
  - Haemorrhage [None]

NARRATIVE: CASE EVENT DATE: 2016
